FAERS Safety Report 8460749-0 (Version None)
Quarter: 2012Q2

REPORT INFORMATION
  Report Type: 
  Country: None (occurrence: None)
  Receive Date: 20120622
  Receipt Date: 20120614
  Transmission Date: 20120825
  Serious: Yes (Death)
  Sender: FDA-Public Use
  Company Number: DE-ROCHE-1078834

PATIENT
  Sex: Male
  Weight: 73 kg

DRUGS (8)
  1. MARCUMAR [Concomitant]
     Dates: start: 20111012
  2. GABAPENTIN [Concomitant]
     Dates: start: 20100514
  3. MIRCERA [Suspect]
     Indication: ANAEMIA
     Dosage: LAST DOSE PRIOR TO SAE:23/APR/2012
     Route: 042
     Dates: start: 20120313
  4. MIRCERA [Suspect]
     Indication: RENAL FAILURE CHRONIC
  5. ADDIVIT [Concomitant]
     Dates: start: 20100301
  6. CALCIUMACETAT [Concomitant]
     Dates: start: 20091014
  7. CALCITRIOL, TOPICAL [Concomitant]
     Dates: start: 20111012
  8. FERRIMED (FOLIC ACID/IRON POLYMALTOSE) [Concomitant]
     Dates: start: 20111019

REACTIONS (1)
  - HAEMORRHAGE [None]
